FAERS Safety Report 11915521 (Version 1)
Quarter: 2016Q1

REPORT INFORMATION
  Report Type: Spontaneous
  Country: US (occurrence: None)
  Receive Date: 20160113
  Receipt Date: 20160113
  Transmission Date: 20160526
  Serious: Yes (Hospitalization)
  Sender: FDA-Public Use
  Company Number: None

PATIENT
  Age: 54 Year
  Sex: Female
  Weight: 101 kg

DRUGS (1)
  1. INVOKAMET [Suspect]
     Active Substance: CANAGLIFLOZIN\METFORMIN HYDROCHLORIDE
     Indication: TYPE 2 DIABETES MELLITUS
     Dosage: (50MG/500MG)
     Route: 048

REACTIONS (9)
  - Confusional state [None]
  - Systemic inflammatory response syndrome [None]
  - Nasal congestion [None]
  - Myalgia [None]
  - Atelectasis [None]
  - Pneumonia [None]
  - Oropharyngeal pain [None]
  - Diabetic ketoacidosis [None]
  - Headache [None]

NARRATIVE: CASE EVENT DATE: 20160104
